FAERS Safety Report 10188362 (Version 2)
Quarter: 2014Q2

REPORT INFORMATION
  Report Type: Spontaneous
  Country: BR (occurrence: BR)
  Receive Date: 20140522
  Receipt Date: 20140522
  Transmission Date: 20141212
  Serious: Yes (Death)
  Sender: FDA-Public Use
  Company Number: BR-PFIZER INC-2013257964

PATIENT
  Age: 56 Year
  Sex: Female
  Weight: 64 kg

DRUGS (5)
  1. SUTENT [Suspect]
     Indication: RENAL CELL CARCINOMA
     Dosage: 50 MG, (1 CAPSULE ONCE DAILY) CYCLIC (CYCLE 4 X 2)
     Route: 048
     Dates: start: 20120902
  2. ZOMETA [Concomitant]
     Dosage: UNK, STRENGTH 40 MG
  3. PURAN T4 [Concomitant]
     Dosage: UNK, STRENGTH 100 MG
  4. LYRICA [Concomitant]
     Dosage: UNK, STRENGTH 70 MG
  5. DECADRON [Concomitant]
     Dosage: UNK, STRENGTH 4 MG

REACTIONS (2)
  - Death [Fatal]
  - Blood pressure increased [Unknown]
